FAERS Safety Report 10791364 (Version 2)
Quarter: 2015Q1

REPORT INFORMATION
  Report Type: Spontaneous
  Country: US (occurrence: US)
  Receive Date: 20150213
  Receipt Date: 20150219
  Transmission Date: 20150721
  Serious: No
  Sender: FDA-Public Use
  Company Number: US-AMGEN-USASP2015011549

PATIENT
  Age: 17 Year
  Sex: Female

DRUGS (3)
  1. ENBREL [Suspect]
     Active Substance: ETANERCEPT
     Indication: ANKYLOSING SPONDYLITIS
  2. ENBREL [Suspect]
     Active Substance: ETANERCEPT
     Indication: JUVENILE IDIOPATHIC ARTHRITIS
     Dosage: 50 MG, QWK
     Route: 065
     Dates: end: 201412
  3. ENBREL [Suspect]
     Active Substance: ETANERCEPT
     Indication: TENDONITIS

REACTIONS (14)
  - Eye disorder [Unknown]
  - Pituitary enlargement [Unknown]
  - Headache [Unknown]
  - Weight decreased [Unknown]
  - Off label use [Unknown]
  - Dehydration [Unknown]
  - Nausea [Unknown]
  - Eye pain [Unknown]
  - Breast enlargement [Unknown]
  - Drug effect incomplete [Unknown]
  - Migraine [Unknown]
  - Visual impairment [Unknown]
  - Hypertension [Unknown]
  - Blood glucose decreased [Unknown]

NARRATIVE: CASE EVENT DATE: 201412
